FAERS Safety Report 5940112-4 (Version None)
Quarter: 2008Q4

REPORT INFORMATION
  Report Type: 
  Country: None (occurrence: None)
  Receive Date: 20081104
  Receipt Date: 20080219
  Transmission Date: 20090506
  Serious: No
  Sender: FDA-Public Use
  Company Number: US-BAYER-200810804BCC

PATIENT
  Age: 24 Year
  Sex: Female
  Weight: 71 kg

DRUGS (3)
  1. ALEVE [Suspect]
     Indication: NASOPHARYNGITIS
     Dosage: UNIT DOSE: 220 MG
     Route: 048
     Dates: start: 20080219
  2. LEMSIP [Suspect]
  3. ORAL CONTRACEPTIVE [Concomitant]

REACTIONS (1)
  - SOMNOLENCE [None]
